FAERS Safety Report 4765280-1 (Version None)
Quarter: 2005Q3

REPORT INFORMATION
  Report Type: 
  Country: None (occurrence: None)
  Receive Date: 20050909
  Receipt Date: 20050311
  Transmission Date: 20060218
  Serious: Yes (Hospitalization, Other)
  Sender: FDA-Public Use
  Company Number: US-MERCK-0503USA02768

PATIENT
  Age: 61 Year
  Sex: Male
  Weight: 127 kg

DRUGS (4)
  1. VIOXX [Suspect]
     Indication: BACK PAIN
     Route: 048
     Dates: start: 20010101, end: 20040901
  2. VIOXX [Suspect]
     Indication: NECK PAIN
     Route: 048
     Dates: start: 20010101, end: 20040901
  3. PRINZIDE [Concomitant]
     Route: 048
  4. ADVAIR DISKUS 100/50 [Concomitant]
     Route: 055

REACTIONS (13)
  - ACUTE MYOCARDIAL INFARCTION [None]
  - ANXIETY [None]
  - ASBESTOSIS [None]
  - BLOOD PRESSURE ABNORMAL [None]
  - CORONARY ARTERY DISEASE [None]
  - CORONARY ARTERY STENOSIS [None]
  - DIVERTICULUM [None]
  - FEAR [None]
  - HYPERLIPIDAEMIA [None]
  - INTERVERTEBRAL DISC PROTRUSION [None]
  - MYOCARDIAL INFARCTION [None]
  - RECTAL POLYP [None]
  - SPINAL OSTEOARTHRITIS [None]
